FAERS Safety Report 4292694-9 (Version None)
Quarter: 2004Q1

REPORT INFORMATION
  Report Type: 
  Country: None (occurrence: None)
  Receive Date: 20040126
  Receipt Date: 20030905
  Transmission Date: 20041129
  Serious: No
  Sender: FDA-Public Use
  Company Number: USA030946437

PATIENT
  Age: 76 Year
  Sex: Female

DRUGS (4)
  1. FORTEO [Suspect]
     Indication: OSTEOPOROSIS
     Dosage: 20 UG/DAY
     Dates: start: 20030801
  2. VITAMIN B COMPLEX CAP [Concomitant]
  3. VITAMIN D [Concomitant]
  4. MULTI-VITAMINS [Concomitant]

REACTIONS (5)
  - ABDOMINAL DISTENSION [None]
  - ARTHRALGIA [None]
  - BREAST PAIN [None]
  - HEADACHE [None]
  - WEIGHT INCREASED [None]
